FAERS Safety Report 6582804-2 (Version None)
Quarter: 2010Q1

REPORT INFORMATION
  Report Type: 
  Country: None (occurrence: None)
  Receive Date: 20100216
  Receipt Date: 20100204
  Transmission Date: 20100710
  Serious: Yes (Other)
  Sender: FDA-Public Use
  Company Number: NO-PFIZER INC-2010014750

PATIENT
  Age: 14 Year
  Sex: Female

DRUGS (2)
  1. GENOTROPIN [Suspect]
     Dosage: UNK
     Route: 058
  2. SOMATROPIN [Suspect]
     Dosage: UNK

REACTIONS (1)
  - HEPATIC NEOPLASM MALIGNANT RESECTABLE [None]
